FAERS Safety Report 16023626 (Version 1)
Quarter: 2019Q1

REPORT INFORMATION
  Report Type: Spontaneous
  Country: US (occurrence: US)
  Receive Date: 20190301
  Receipt Date: 20190301
  Transmission Date: 20190418
  Serious: Yes (Other)
  Sender: FDA-Public Use
  Company Number: PHHY2019US043936

PATIENT
  Age: 50 Year
  Sex: Female

DRUGS (1)
  1. PAZOPANIB [Suspect]
     Active Substance: PAZOPANIB
     Indication: CHONDROSARCOMA
     Dosage: 800 MG, QD
     Route: 065

REACTIONS (4)
  - Hypertension [Unknown]
  - Malignant neoplasm progression [Unknown]
  - Tumour pain [Unknown]
  - Chondrosarcoma [Unknown]
